FAERS Safety Report 4835855-X (Version None)
Quarter: 2005Q4

REPORT INFORMATION
  Report Type: 
  Country: None (occurrence: None)
  Receive Date: 20051123
  Receipt Date: 20051121
  Transmission Date: 20060501
  Serious: Yes (Other)
  Sender: FDA-Public Use
  Company Number: US-GLAXOSMITHKLINE-A0583044A

PATIENT
  Age: 45 Year
  Sex: Female

DRUGS (2)
  1. NICODERM CQ [Suspect]
     Dosage: 21MG SEE DOSAGE TEXT
     Route: 062
     Dates: start: 20051025, end: 20051116
  2. NO CONCURRENT MEDICATION [Concomitant]

REACTIONS (9)
  - ABNORMAL DREAMS [None]
  - CRYING [None]
  - EMOTIONAL DISORDER [None]
  - HALLUCINATION [None]
  - INSOMNIA [None]
  - NICOTINE DEPENDENCE [None]
  - PANIC REACTION [None]
  - PARANOIA [None]
  - TREMOR [None]
